FAERS Safety Report 17576713 (Version 2)
Quarter: 2020Q2

REPORT INFORMATION
  Report Type: Other
  Country: None (occurrence: US)
  Receive Date: 20200324
  Receipt Date: 20200622
  Transmission Date: 20200713
  Serious: No
  Sender: FDA-Public Use
  Company Number: US-ACORDA-ACO_164036_2020

PATIENT
  Sex: Female

DRUGS (4)
  1. INBRIJA [Suspect]
     Active Substance: LEVODOPA
     Indication: ON AND OFF PHENOMENON
  2. NEUPRO [Concomitant]
     Active Substance: ROTIGOTINE
     Indication: PRODUCT USED FOR UNKNOWN INDICATION
     Dosage: 3 MILLIGRAM, QD
     Route: 065
  3. INBRIJA [Suspect]
     Active Substance: LEVODOPA
     Indication: PARKINSON^S DISEASE
     Dosage: 84 MILLIGRAM, PRN (UP TO FIVE TIMES PER DAY)
     Dates: start: 20200220
  4. CARBIDOPA AND LEVODOPA [Concomitant]
     Active Substance: CARBIDOPA\LEVODOPA
     Indication: PRODUCT USED FOR UNKNOWN INDICATION
     Dosage: (62.5-250MG) 2 DOSAGE FORM, QID
     Route: 065

REACTIONS (5)
  - Adverse event [Unknown]
  - Dyspnoea [Unknown]
  - Device issue [Unknown]
  - Cough [Unknown]
  - Incorrect dose administered [Unknown]
